FAERS Safety Report 5067728-4 (Version None)
Quarter: 2006Q3

REPORT INFORMATION
  Report Type: 
  Country: None (occurrence: None)
  Receive Date: 20060712
  Receipt Date: 20060509
  Transmission Date: 20061208
  Serious: Yes (Other)
  Sender: FDA-Public Use
  Company Number: A03200602907

PATIENT
  Sex: Male

DRUGS (2)
  1. UROXATRAL [Suspect]
     Dosage: ORAL
     Route: 048
     Dates: start: 20060508
  2. TOPROL-XL [Suspect]
     Dosage: ORAL
     Route: 048

REACTIONS (6)
  - BLOOD PRESSURE DECREASED [None]
  - COLD SWEAT [None]
  - DIZZINESS [None]
  - FALL [None]
  - LOSS OF CONSCIOUSNESS [None]
  - PULSE PRESSURE DECREASED [None]
